FAERS Safety Report 9059230 (Version 1)
Quarter: 2013Q1

REPORT INFORMATION
  Report Type: Spontaneous
  Country: US (occurrence: US)
  Receive Date: 20130211
  Receipt Date: 20130211
  Transmission Date: 20140127
  Serious: No
  Sender: FDA-Public Use
  Company Number: US-ASTRAZENECA-2013SE04295

PATIENT
  Age: 74 Year
  Sex: Female

DRUGS (5)
  1. CRESTOR [Suspect]
     Indication: BLOOD CHOLESTEROL INCREASED
     Route: 048
  2. ASPIRIN [Concomitant]
  3. DILTIAZEM [Concomitant]
  4. ARICEPT [Concomitant]
  5. METHOTREXATE [Concomitant]

REACTIONS (1)
  - Chest pain [Recovered/Resolved]
